FAERS Safety Report 6190430-2 (Version None)
Quarter: 2009Q2

REPORT INFORMATION
  Report Type: 
  Country: None (occurrence: None)
  Receive Date: 20090514
  Receipt Date: 20090511
  Transmission Date: 20091009
  Serious: Yes (Other)
  Sender: FDA-Public Use
  Company Number: US-ABBOTT-09P-163-0572369-00

PATIENT
  Sex: Female
  Weight: 50.848 kg

DRUGS (5)
  1. HUMIRA [Suspect]
     Indication: CROHN'S DISEASE
     Route: 058
     Dates: start: 20070701
  2. IMURAN [Concomitant]
     Indication: DRUG USE FOR UNKNOWN INDICATION
     Route: 048
  3. NEXIUM [Concomitant]
     Indication: DRUG USE FOR UNKNOWN INDICATION
     Route: 048
  4. ATIVAN [Concomitant]
     Indication: DRUG USE FOR UNKNOWN INDICATION
     Route: 048
  5. ADVAIR HFA [Concomitant]
     Indication: ASTHMA
     Route: 055

REACTIONS (5)
  - ANXIETY [None]
  - COLONIC STENOSIS [None]
  - CROHN'S DISEASE [None]
  - DRUG DOSE OMISSION [None]
  - URINARY TRACT INFECTION [None]
